FAERS Safety Report 7077440-8 (Version None)
Quarter: 2010Q4

REPORT INFORMATION
  Report Type: 
  Country: None (occurrence: None)
  Receive Date: 20101021
  Receipt Date: 20091113
  Transmission Date: 20110411
  Serious: Yes (Hospitalization)
  Sender: FDA-Public Use
  Company Number: BVT-000368

PATIENT
  Sex: Female
  Weight: 86 kg

DRUGS (14)
  1. KINERET [Suspect]
     Indication: SAPHO SYNDROME
     Dosage: (100 MG QD SUBCUTANEOUS)
     Route: 058
     Dates: start: 20090820
  2. CARTREX [Concomitant]
  3. NEXIUM [Concomitant]
  4. SKENAN [Concomitant]
  5. METHOTREXATE [Concomitant]
  6. SPECIAFOLDINE [Concomitant]
  7. ACTISKENAN [Concomitant]
  8. SEROPLEX [Concomitant]
  9. RIVOTRIL [Concomitant]
  10. HESPERIDIN METHYL CHALCONE [Concomitant]
  11. ALPRAZOLAM [Concomitant]
  12. DIPROSALIC [Concomitant]
  13. DIPROSONE [Concomitant]
  14. TRIDESONIT [Concomitant]

REACTIONS (42)
  - ABSCESS [None]
  - ALOPECIA [None]
  - ARTHRALGIA [None]
  - ASTHENIA [None]
  - BACK PAIN [None]
  - BLOOD DISORDER [None]
  - BONE DISORDER [None]
  - BONE PAIN [None]
  - BURNING SENSATION [None]
  - CHEST PAIN [None]
  - DECREASED APPETITE [None]
  - DYSGEUSIA [None]
  - EYE DISORDER [None]
  - FORMICATION [None]
  - GAIT DISTURBANCE [None]
  - GENITAL HERPES [None]
  - HEADACHE [None]
  - HIRSUTISM [None]
  - INCORRECT DOSE ADMINISTERED [None]
  - INJECTION SITE EXTRAVASATION [None]
  - INJECTION SITE OEDEMA [None]
  - INJECTION SITE PAIN [None]
  - INSOMNIA [None]
  - IRRITABILITY [None]
  - MADAROSIS [None]
  - MUSCLE FATIGUE [None]
  - MUSCULAR WEAKNESS [None]
  - MUSCULOSKELETAL PAIN [None]
  - OPTIC NEUROPATHY [None]
  - ORAL HERPES [None]
  - PAIN IN EXTREMITY [None]
  - PAIN IN JAW [None]
  - PARAESTHESIA [None]
  - PAROSMIA [None]
  - PHOTOPHOBIA [None]
  - PSORIASIS [None]
  - SPEECH DISORDER [None]
  - SUBCUTANEOUS ABSCESS [None]
  - TENDON PAIN [None]
  - TENDONITIS [None]
  - TOOTH DISORDER [None]
  - VULVOVAGINAL CANDIDIASIS [None]
